FAERS Safety Report 21551533 (Version 2)
Quarter: 2023Q1

REPORT INFORMATION
  Report Type: Report from Study
  Country: CA (occurrence: CA)
  Receive Date: 20221103
  Receipt Date: 20230209
  Transmission Date: 20230418
  Serious: Yes (Other)
  Sender: FDA-Public Use
  Company Number: CA-ABBVIE-21K-028-3894095-00

PATIENT
  Age: 47 Year
  Sex: Female

DRUGS (22)
  1. HUMIRA [Suspect]
     Active Substance: ADALIMUMAB
     Indication: Colitis ulcerative
     Route: 058
     Dates: start: 20141212, end: 20200528
  2. STELARA [Concomitant]
     Active Substance: USTEKINUMAB
     Indication: Colitis ulcerative
     Route: 058
     Dates: start: 20200529, end: 20200926
  3. MESALAMINE [Concomitant]
     Active Substance: MESALAMINE
     Indication: Colitis ulcerative
     Route: 048
     Dates: start: 201306
  4. SYNTHROID [Concomitant]
     Active Substance: LEVOTHYROXINE SODIUM
     Indication: Hypothyroidism
     Route: 048
     Dates: start: 201307
  5. VITAMIN D [Concomitant]
     Active Substance: VITAMIN D NOS
     Indication: Vitamin supplementation
     Route: 048
     Dates: start: 20151220
  6. TYLENOL [Concomitant]
     Active Substance: ACETAMINOPHEN
     Indication: Abdominal pain
     Dosage: AS REQUIRED
     Route: 048
     Dates: start: 201306
  7. EFFEXOR [Concomitant]
     Active Substance: VENLAFAXINE HYDROCHLORIDE
     Indication: Menopausal symptoms
     Route: 048
     Dates: start: 20160721
  8. PANTOPRAZOLE [Concomitant]
     Active Substance: PANTOPRAZOLE
     Indication: Gastrooesophageal reflux disease
     Route: 048
     Dates: start: 20170914
  9. CLOBETASOL [Concomitant]
     Active Substance: CLOBETASOL
     Indication: Dermatitis contact
     Dosage: AS REQUIRED
     Route: 061
     Dates: start: 20170726
  10. DIBUCAINE\ESCULIN\HYDROCORTISONE\NEOMYCIN [Concomitant]
     Active Substance: DIBUCAINE\ESCULIN\HYDROCORTISONE\NEOMYCIN
     Indication: Haemorrhoids
     Dosage: AS REQUIRED
     Route: 054
     Dates: start: 20170726
  11. PERINDOPRIL [Concomitant]
     Active Substance: PERINDOPRIL
     Indication: Diabetic nephropathy
     Route: 048
     Dates: start: 20180909
  12. OTEZLA [Concomitant]
     Active Substance: APREMILAST
     Indication: Psoriasis
     Route: 048
     Dates: start: 20190105
  13. RUPATADINE FUMARATE [Concomitant]
     Active Substance: RUPATADINE FUMARATE
     Indication: Upper-airway cough syndrome
     Dosage: AS REQUIRED
     Route: 048
     Dates: start: 20190311
  14. ROSUVASTATIN [Concomitant]
     Active Substance: ROSUVASTATIN
     Indication: Hypercholesterolaemia
     Route: 048
     Dates: start: 20190704
  15. METFORMIN [Concomitant]
     Active Substance: METFORMIN HYDROCHLORIDE
     Indication: Diabetes mellitus
     Route: 048
     Dates: start: 20190704
  16. ROBAXACET [Concomitant]
     Active Substance: ACETAMINOPHEN\METHOCARBAMOL
     Indication: Arthralgia
     Dosage: 400/325 MG AS REQUIRED
     Route: 048
     Dates: start: 20190704
  17. DAPAGLIFLOZIN [Concomitant]
     Active Substance: DAPAGLIFLOZIN
     Indication: Diabetes mellitus
     Route: 048
     Dates: start: 20200420
  18. MOMETASONE [Concomitant]
     Active Substance: MOMETASONE
     Indication: Psoriasis
     Dosage: AS REQUIRED
     Route: 061
     Dates: start: 20200422
  19. ARISTOCORT [Concomitant]
     Active Substance: TRIAMCINOLONE DIACETATE
     Indication: Psoriasis
     Dosage: AS REQUIRED
     Route: 061
     Dates: start: 20200422
  20. PREDNISONE [Concomitant]
     Active Substance: PREDNISONE
     Indication: Colitis ulcerative
     Route: 048
     Dates: start: 20200927, end: 20221031
  21. PREDNISONE [Concomitant]
     Active Substance: PREDNISONE
     Indication: Colitis ulcerative
     Route: 048
     Dates: start: 20201101
  22. MIDODRINE [Concomitant]
     Active Substance: MIDODRINE
     Indication: Syncope
     Route: 048
     Dates: start: 20200815

REACTIONS (1)
  - Interstitial lung disease [Recovered/Resolved]

NARRATIVE: CASE EVENT DATE: 20201002
